FAERS Safety Report 26059930 (Version 1)
Quarter: 2025Q4

REPORT INFORMATION
  Report Type: Spontaneous
  Country: CN (occurrence: CN)
  Receive Date: 20251118
  Receipt Date: 20251118
  Transmission Date: 20260118
  Serious: Yes (Life-Threatening, Other)
  Sender: PFIZER
  Company Number: CN-PFIZER INC-PV202500133476

PATIENT
  Age: 53 Year
  Sex: Male

DRUGS (6)
  1. METHYLPREDNISOLONE SODIUM SUCCINATE [Suspect]
     Active Substance: METHYLPREDNISOLONE SODIUM SUCCINATE
     Indication: Cold type haemolytic anaemia
     Dosage: 200 MG, DAILY FOR 4 DAYS FOLLOWED BY GRADUAL TAPER
     Route: 042
  2. METHYLPREDNISOLONE SODIUM SUCCINATE [Suspect]
     Active Substance: METHYLPREDNISOLONE SODIUM SUCCINATE
     Indication: Acquired haemophilia
  3. CYCLOPHOSPHAMIDE [Suspect]
     Active Substance: CYCLOPHOSPHAMIDE
     Indication: Cold type haemolytic anaemia
     Dosage: 100 MG, 1X/DAY
     Route: 048
  4. CYCLOPHOSPHAMIDE [Suspect]
     Active Substance: CYCLOPHOSPHAMIDE
     Indication: Acquired haemophilia
  5. PREDNISONE [Suspect]
     Active Substance: PREDNISONE
     Indication: Cold type haemolytic anaemia
     Dosage: 1 MG/KG, 1X/DAY
  6. PREDNISONE [Suspect]
     Active Substance: PREDNISONE
     Indication: Acquired haemophilia

REACTIONS (3)
  - Pneumonia [Unknown]
  - Septic shock [Unknown]
  - Off label use [Unknown]
